FAERS Safety Report 5873778-8 (Version None)
Quarter: 2008Q3

REPORT INFORMATION
  Report Type: 
  Country: None (occurrence: None)
  Receive Date: 20080903
  Receipt Date: 20080903
  Transmission Date: 20090109
  Serious: Yes (Hospitalization)
  Sender: FDA-Public Use
  Company Number: None

PATIENT
  Sex: Male
  Weight: 98.5 kg

DRUGS (1)
  1. CISPLATIN [Suspect]
     Dosage: 173 MG
     Dates: end: 20080805

REACTIONS (5)
  - CHILLS [None]
  - FEBRILE NEUTROPENIA [None]
  - LUNG DISORDER [None]
  - PAIN [None]
  - WHITE BLOOD CELL COUNT DECREASED [None]
